FAERS Safety Report 22147055 (Version 2)
Quarter: 2023Q2

REPORT INFORMATION
  Report Type: Spontaneous
  Country: SK (occurrence: SK)
  Receive Date: 20230328
  Receipt Date: 20230412
  Transmission Date: 20230721
  Serious: Yes (Other)
  Sender: FDA-Public Use
  Company Number: SK-ABBVIE-4339532

PATIENT
  Age: 45 Year
  Sex: Female

DRUGS (2)
  1. ADALIMUMAB [Suspect]
     Active Substance: ADALIMUMAB
     Indication: Seronegative arthritis
     Dosage: UNK
     Route: 058
  2. UPADACITINIB [Concomitant]
     Active Substance: UPADACITINIB
     Indication: Product used for unknown indication
     Dosage: UNK
     Route: 065
     Dates: start: 202202

REACTIONS (13)
  - Lupus-like syndrome [Unknown]
  - Meniscus injury [Unknown]
  - Synovial cyst [Unknown]
  - Rosacea [Unknown]
  - Fatigue [Unknown]
  - Arthralgia [Unknown]
  - Erythema [Unknown]
  - Inflammation [Unknown]
  - Alanine aminotransferase increased [Unknown]
  - Butterfly rash [Unknown]
  - Alopecia [Unknown]
  - Infrapatellar fat pad inflammation [Unknown]
  - Arthropod bite [Unknown]

NARRATIVE: CASE EVENT DATE: 20190101
